FAERS Safety Report 6460952-5 (Version None)
Quarter: 2009Q4

REPORT INFORMATION
  Report Type: 
  Country: None (occurrence: None)
  Receive Date: 20091123
  Receipt Date: 20091109
  Transmission Date: 20100525
  Serious: Yes (Hospitalization)
  Sender: FDA-Public Use
  Company Number: 2009AC000072

PATIENT
  Age: 46 Year
  Sex: Male
  Weight: 147.8726 kg

DRUGS (41)
  1. DIGOXIN [Suspect]
     Dosage: 0.25 MG; QD;PO
     Route: 048
     Dates: start: 20051209
  2. DIGOXIN [Suspect]
     Dosage: 0.125 MG; QD;PO
     Route: 048
  3. DEMADEX [Concomitant]
  4. MAGNESIUM OXIDE [Concomitant]
  5. ALLOPURINOL [Concomitant]
  6. SYNTHROID [Concomitant]
  7. BYETTA [Concomitant]
  8. AMIODARONE HCL [Concomitant]
  9. SPIRONOLACTONE [Concomitant]
  10. XENICAL [Concomitant]
  11. AMBIEN [Concomitant]
  12. SINGULAIR [Concomitant]
  13. LISINOPRIL [Concomitant]
  14. COREG [Concomitant]
  15. THYROLAR [Concomitant]
  16. ORLISTAT [Concomitant]
  17. TORSEMIDE [Concomitant]
  18. LUNESTA [Concomitant]
  19. XOPENEX [Concomitant]
  20. ADVAIR DISKUS 100/50 [Concomitant]
  21. WARFARIN SODIUM [Concomitant]
  22. ZYRTEC [Concomitant]
  23. FUROSEMIDE [Concomitant]
  24. LEVAQUIN [Concomitant]
  25. HYDROCORDONE [Concomitant]
  26. LEVOTHYROXINE SODIUM [Concomitant]
  27. METOLAZONE [Concomitant]
  28. POTASSIUM [Concomitant]
  29. VIAGRA [Concomitant]
  30. NASONEX [Concomitant]
  31. POTASSIUM CHLORIDE [Concomitant]
  32. TIKOSYN [Concomitant]
  33. COREG [Concomitant]
  34. LASIX [Concomitant]
  35. KLOR-CON [Concomitant]
  36. PACERONE [Concomitant]
  37. SIMETHICONE [Concomitant]
  38. NIASPAN [Concomitant]
  39. DARVOCET [Concomitant]
  40. KEFLEX [Concomitant]
  41. AMOXICILLIN [Concomitant]

REACTIONS (53)
  - ABDOMINAL PAIN UPPER [None]
  - AORTIC VALVE CALCIFICATION [None]
  - ATRIAL FIBRILLATION [None]
  - ATRIOVENTRICULAR BLOCK FIRST DEGREE [None]
  - BLOOD CHLORIDE INCREASED [None]
  - BLOOD GLUCOSE INCREASED [None]
  - BONE DENSITY DECREASED [None]
  - BRAIN NATRIURETIC PEPTIDE INCREASED [None]
  - CARBON DIOXIDE INCREASED [None]
  - CARDIAC FAILURE [None]
  - CARDIAC FAILURE CONGESTIVE [None]
  - CARDIOMYOPATHY [None]
  - CHILLS [None]
  - CHOLECYSTITIS ACUTE [None]
  - CHOLECYSTITIS CHRONIC [None]
  - CHOLELITHIASIS [None]
  - DECREASED APPETITE [None]
  - DIARRHOEA [None]
  - DIZZINESS [None]
  - ECONOMIC PROBLEM [None]
  - EJECTION FRACTION DECREASED [None]
  - ERECTILE DYSFUNCTION [None]
  - EXERCISE TOLERANCE DECREASED [None]
  - FALL [None]
  - FATIGUE [None]
  - FLUID RETENTION [None]
  - HEPATIC ENZYME INCREASED [None]
  - HEPATOJUGULAR REFLUX [None]
  - HYPOKALAEMIA [None]
  - HYPOTENSION [None]
  - INJURY [None]
  - JUGULAR VEIN DISTENSION [None]
  - LABORATORY TEST ABNORMAL [None]
  - LEFT VENTRICULAR HYPERTROPHY [None]
  - LEUKOCYTOSIS [None]
  - LOSS OF CONSCIOUSNESS [None]
  - MITRAL VALVE INCOMPETENCE [None]
  - NASAL CONGESTION [None]
  - OROPHARYNGEAL PAIN [None]
  - PAIN [None]
  - PALPITATIONS [None]
  - PULMONARY ARTERIAL PRESSURE INCREASED [None]
  - PULMONARY CONGESTION [None]
  - PYREXIA [None]
  - RENAL FAILURE ACUTE [None]
  - RHINITIS ALLERGIC [None]
  - RIGHT ATRIAL DILATATION [None]
  - SLEEP APNOEA SYNDROME [None]
  - SUPRAVENTRICULAR EXTRASYSTOLES [None]
  - UPPER RESPIRATORY TRACT INFECTION [None]
  - VENTRICULAR EXTRASYSTOLES [None]
  - VENTRICULAR TACHYCARDIA [None]
  - WEIGHT DECREASED [None]
